FAERS Safety Report 13628650 (Version 1)
Quarter: 2017Q2

REPORT INFORMATION
  Report Type: Spontaneous
  Country: JP (occurrence: JP)
  Receive Date: 20170607
  Receipt Date: 20170607
  Transmission Date: 20170830
  Serious: Yes (Hospitalization)
  Sender: FDA-Public Use
  Company Number: JP-JNJFOC-20170602388

PATIENT
  Age: 88 Year
  Sex: Female

DRUGS (13)
  1. TRAMAL [Suspect]
     Active Substance: TRAMADOL
     Indication: ARTHRALGIA
     Route: 048
  2. TRAMAL [Suspect]
     Active Substance: TRAMADOL
     Indication: ARTHRALGIA
     Route: 048
     Dates: start: 20170329
  3. TRAMAL [Suspect]
     Active Substance: TRAMADOL
     Indication: ARTHRALGIA
     Route: 048
  4. TRAMAL [Suspect]
     Active Substance: TRAMADOL
     Indication: ARTHRALGIA
     Route: 048
  5. TRAMAL [Suspect]
     Active Substance: TRAMADOL
     Indication: BACK PAIN
     Route: 048
     Dates: start: 20170329
  6. NOVAMIN (PROCHLORPERAZINE) [Concomitant]
     Active Substance: PROCHLORPERAZINE
     Indication: PRODUCT USED FOR UNKNOWN INDICATION
     Route: 065
  7. ASPARA-CA [Concomitant]
     Active Substance: CALCIUM ASPARTATE
     Route: 065
  8. TRAMAL [Suspect]
     Active Substance: TRAMADOL
     Indication: ARTHRALGIA
     Route: 048
  9. HALCION [Concomitant]
     Active Substance: TRIAZOLAM
     Route: 065
  10. TRAMAL [Suspect]
     Active Substance: TRAMADOL
     Indication: BACK PAIN
     Route: 048
  11. TRAMAL [Suspect]
     Active Substance: TRAMADOL
     Indication: ARTHRALGIA
     Route: 048
     Dates: start: 20170329
  12. TRAMAL [Suspect]
     Active Substance: TRAMADOL
     Indication: BACK PAIN
     Route: 048
  13. EDIROL [Concomitant]
     Active Substance: ELDECALCITOL
     Route: 065

REACTIONS (1)
  - Gait disturbance [Unknown]
